FAERS Safety Report 8964929 (Version 1)
Quarter: 2012Q4

REPORT INFORMATION
  Report Type: 
  Country: AU (occurrence: AU)
  Receive Date: 20121213
  Receipt Date: 20121213
  Transmission Date: 20130627
  Serious: Yes (Hospitalization)
  Sender: FDA-Public Use
  Company Number: AU-B.I. PHARMACEUTICALS,INC./RIDGEFIELD-2012-AU-01966AU

PATIENT
  Sex: Male

DRUGS (2)
  1. PRADAXA [Suspect]
  2. CRESTOR [Concomitant]
     Dates: start: 2007

REACTIONS (4)
  - Myopathy [Unknown]
  - Dysphagia [Unknown]
  - Malaise [Unknown]
  - Nodule [Unknown]
